FAERS Safety Report 6826503-8 (Version None)
Quarter: 2010Q3

REPORT INFORMATION
  Report Type: 
  Country: None (occurrence: None)
  Receive Date: 20100709
  Receipt Date: 20100707
  Transmission Date: 20110219
  Serious: Yes (Death)
  Sender: FDA-Public Use
  Company Number: US-GILEAD-2010-0029572

PATIENT
  Sex: Female

DRUGS (7)
  1. LETAIRIS [Suspect]
     Indication: PULMONARY ARTERIAL HYPERTENSION
     Route: 048
     Dates: start: 20090625
  2. ADCIRCA [Concomitant]
  3. DIOVAN [Concomitant]
  4. JANUVIA [Concomitant]
  5. METFORMIN HCL [Concomitant]
  6. ACETAMIN [Concomitant]
  7. FENTANYL DIS [Concomitant]

REACTIONS (1)
  - PULMONARY ARTERIAL HYPERTENSION [None]
